FAERS Safety Report 5368433-7 (Version None)
Quarter: 2007Q2

REPORT INFORMATION
  Report Type: 
  Country: None (occurrence: None)
  Receive Date: 20070621
  Receipt Date: 20070621
  Transmission Date: 20071010
  Serious: No
  Sender: FDA-Public Use
  Company Number: None

PATIENT
  Age: 38 Year
  Sex: Female
  Weight: 59.4212 kg

DRUGS (1)
  1. NUVARING [Suspect]
     Indication: CONTRACEPTION
     Dosage: 1 1 INTRA-UTERI
     Route: 015
     Dates: start: 20061225, end: 20070616

REACTIONS (3)
  - MICTURITION URGENCY [None]
  - VAGINAL BURNING SENSATION [None]
  - WEIGHT INCREASED [None]
